FAERS Safety Report 8600157-2 (Version None)
Quarter: 2012Q3

REPORT INFORMATION
  Report Type: 
  Country: None (occurrence: None)
  Receive Date: 20120817
  Receipt Date: 20120806
  Transmission Date: 20120928
  Serious: Yes (Life-Threatening, Hospitalization)
  Sender: FDA-Public Use
  Company Number: DE-BIOGENIDEC-2012BI006109

PATIENT
  Age: 49 Year
  Sex: Female
  Weight: 75 kg

DRUGS (9)
  1. MIRTAZAPINE [Concomitant]
     Indication: DEPRESSION
     Dates: end: 20120101
  2. MIRTAZAPINE [Concomitant]
     Indication: PROGRESSIVE MULTIFOCAL LEUKOENCEPHALOPATHY
     Dates: end: 20120101
  3. TYSABRI [Suspect]
     Indication: PROGRESSIVE RELAPSING MULTIPLE SCLEROSIS
     Route: 042
     Dates: start: 20080301, end: 20120111
  4. MIRTAZAPINE [Concomitant]
     Route: 048
     Dates: start: 20120210, end: 20120101
  5. DIBENZYRAN [Concomitant]
     Indication: BLADDER DYSFUNCTION
     Dates: start: 20080101
  6. MIRTAZAPINE [Concomitant]
     Route: 048
     Dates: start: 20120211
  7. TOLTERODINE TARTRATE [Concomitant]
     Indication: BLADDER DYSFUNCTION
     Dates: start: 20080101
  8. MIRTAZAPINE [Concomitant]
     Route: 048
     Dates: start: 20120210, end: 20120101
  9. MIRTAZAPINE [Concomitant]
     Route: 048
     Dates: start: 20120211

REACTIONS (4)
  - IMMUNE RECONSTITUTION SYNDROME [None]
  - RESTLESSNESS [None]
  - PROGRESSIVE MULTIFOCAL LEUKOENCEPHALOPATHY [None]
  - ANXIETY [None]
